FAERS Safety Report 11088260 (Version 1)
Quarter: 2015Q2

REPORT INFORMATION
  Report Type: Spontaneous
  Country: GB (occurrence: GB)
  Receive Date: 20150504
  Receipt Date: 20150504
  Transmission Date: 20150821
  Serious: Yes (Other)
  Sender: FDA-Public Use
  Company Number: GB-INTERMUNE, INC.-201504IM014524

PATIENT
  Age: 81 Year
  Sex: Male
  Weight: 95.2 kg

DRUGS (1)
  1. ESBRIET [Suspect]
     Active Substance: PIRFENIDONE
     Indication: IDIOPATHIC PULMONARY FIBROSIS
     Dosage: 2403 MG
     Route: 048
     Dates: start: 20140904, end: 20150405

REACTIONS (4)
  - Chromaturia [Recovering/Resolving]
  - Vomiting [Recovering/Resolving]
  - Liver function test abnormal [Recovering/Resolving]
  - Dizziness [Recovering/Resolving]

NARRATIVE: CASE EVENT DATE: 20150405
